FAERS Safety Report 4673238-6 (Version None)
Quarter: 2005Q2

REPORT INFORMATION
  Report Type: 
  Country: None (occurrence: None)
  Receive Date: 20050525
  Receipt Date: 20050518
  Transmission Date: 20051028
  Serious: Yes (Other)
  Sender: FDA-Public Use
  Company Number: 200514548GDDC

PATIENT
  Age: 40 Year
  Sex: Female

DRUGS (5)
  1. CLEXANE [Suspect]
     Indication: ANTICOAGULANT THERAPY
     Dosage: DOSE: 80 MG IV WITH THE DIALYSIS SYSTEM
     Route: 042
     Dates: start: 20021003
  2. CLEXANE [Suspect]
     Indication: HAEMODIALYSIS
     Dosage: DOSE: 80 MG IV WITH THE DIALYSIS SYSTEM
     Route: 042
     Dates: start: 20021003
  3. EPREX [Concomitant]
     Indication: ANAEMIA
     Dosage: DOSE UNIT: UNITS
     Route: 042
  4. VENOFER [Concomitant]
     Indication: ANAEMIA
     Route: 042
  5. CHLOFAZOLIN [Concomitant]
     Indication: HYPERTONIA
     Route: 042

REACTIONS (3)
  - ERYTHEMA [None]
  - OEDEMA PERIPHERAL [None]
  - PAIN IN EXTREMITY [None]
